FAERS Safety Report 21492488 (Version 1)
Quarter: 2022Q4

REPORT INFORMATION
  Report Type: Spontaneous
  Country: FR (occurrence: FR)
  Receive Date: 20221021
  Receipt Date: 20221021
  Transmission Date: 20230112
  Serious: Yes (Other)
  Sender: FDA-Public Use
  Company Number: FR-009507513-2210FRA002233

PATIENT
  Sex: Female

DRUGS (2)
  1. BEVACIZUMAB [Suspect]
     Active Substance: BEVACIZUMAB
     Indication: Product used for unknown indication
     Dosage: UNK
     Route: 065
  2. OLAPARIB [Suspect]
     Active Substance: OLAPARIB
     Indication: Ovarian neoplasm
     Dosage: 100 MILLIGRAM, BID
     Route: 065

REACTIONS (3)
  - Haematotoxicity [Unknown]
  - Anaemia [Recovering/Resolving]
  - Anaemia [Unknown]
